FAERS Safety Report 13948864 (Version 1)
Quarter: 2017Q3

REPORT INFORMATION
  Report Type: Spontaneous
  Country: US (occurrence: US)
  Receive Date: 20170908
  Receipt Date: 20170908
  Transmission Date: 20171128
  Serious: Yes (Other)
  Sender: FDA-Public Use
  Company Number: US-BRISTOL-MYERS SQUIBB COMPANY-BMS-2017-079060

PATIENT
  Sex: Female

DRUGS (1)
  1. SPRYCEL [Suspect]
     Active Substance: DASATINIB
     Indication: CHRONIC MYELOID LEUKAEMIA
     Dosage: 1 DF, UNK
     Route: 048
     Dates: start: 20170325

REACTIONS (5)
  - Product use issue [Unknown]
  - Myalgia [Unknown]
  - Uterine leiomyoma [Unknown]
  - Abdominal pain [Unknown]
  - Cyst [Unknown]
